FAERS Safety Report 4915036-1 (Version None)
Quarter: 2006Q1

REPORT INFORMATION
  Report Type: 
  Country: None (occurrence: None)
  Receive Date: 20060215
  Receipt Date: 20060215
  Transmission Date: 20060701
  Serious: Yes (Hospitalization)
  Sender: FDA-Public Use
  Company Number: None

PATIENT
  Age: 62 Year
  Sex: Female

DRUGS (2)
  1. DICLOFENAC  75MG [Suspect]
     Indication: OSTEOARTHRITIS
     Dosage: 75MG  BID  PO
     Route: 048
  2. NAPROXEN [Suspect]
     Indication: OSTEOARTHRITIS
     Dosage: 220MG   PRN   PO
     Route: 048

REACTIONS (6)
  - ANAEMIA [None]
  - FATIGUE [None]
  - HAEMATEMESIS [None]
  - MELAENA [None]
  - OCCULT BLOOD POSITIVE [None]
  - OESOPHAGITIS ULCERATIVE [None]
